FAERS Safety Report 8271425-1 (Version None)
Quarter: 2012Q2

REPORT INFORMATION
  Report Type: 
  Country: None (occurrence: None)
  Receive Date: 20120410
  Receipt Date: 20120404
  Transmission Date: 20120825
  Serious: Yes (Other)
  Sender: FDA-Public Use
  Company Number: PHHY2012NZ029092

PATIENT
  Sex: Female

DRUGS (2)
  1. FAMVIR [Suspect]
     Indication: ORAL HERPES
     Dosage: TOOK ONE 1500 MG DOSE
     Route: 048
     Dates: start: 20120331
  2. ANTIBIOTICS [Concomitant]
     Indication: SKIN INFECTION

REACTIONS (11)
  - SWOLLEN TONGUE [None]
  - EYE PRURITUS [None]
  - HYPERVENTILATION [None]
  - ANXIETY [None]
  - HYPERSENSITIVITY [None]
  - THROAT IRRITATION [None]
  - DYSPNOEA [None]
  - HEADACHE [None]
  - PRURITUS GENERALISED [None]
  - NAUSEA [None]
  - DIARRHOEA [None]
